FAERS Safety Report 21035320 (Version 1)
Quarter: 2022Q3

REPORT INFORMATION
  Report Type: Spontaneous
  Country: US (occurrence: US)
  Receive Date: 20220701
  Receipt Date: 20220701
  Transmission Date: 20221026
  Serious: Yes (Other)
  Sender: FDA-Public Use
  Company Number: US-ELI_LILLY_AND_COMPANY-US202206013883

PATIENT
  Sex: Male

DRUGS (6)
  1. TADALAFIL [Suspect]
     Active Substance: TADALAFIL
     Indication: Product used for unknown indication
     Dosage: UNK UNK, UNKNOWN
     Route: 065
     Dates: start: 2021
  2. OFEV [Suspect]
     Active Substance: NINTEDANIB
     Indication: HIV infection
     Dosage: 200 MG, DAILY
     Route: 048
     Dates: start: 20190629
  3. OFEV [Suspect]
     Active Substance: NINTEDANIB
     Dosage: 300 MG, DAILY
     Route: 048
     Dates: start: 20190729
  4. TYVASO [Concomitant]
     Active Substance: TREPROSTINIL
     Indication: Pulmonary arterial hypertension
     Dosage: 16 U, DAILY
     Route: 055
  5. OPSUMIT [Concomitant]
     Active Substance: MACITENTAN
     Indication: Product used for unknown indication
  6. SILDENAFIL CITRATE [Concomitant]
     Active Substance: SILDENAFIL CITRATE
     Indication: Product used for unknown indication

REACTIONS (18)
  - Pulmonary arterial hypertension [Unknown]
  - Gastric disorder [Unknown]
  - Weight decreased [Unknown]
  - Muscle spasms [Unknown]
  - Seasonal allergy [Unknown]
  - Sensation of foreign body [Unknown]
  - Decreased appetite [Unknown]
  - Productive cough [Unknown]
  - Weight decreased [Unknown]
  - Arthralgia [Unknown]
  - Headache [Unknown]
  - Diarrhoea [Unknown]
  - Dyspepsia [Unknown]
  - Fatigue [Unknown]
  - Dyspnoea [Unknown]
  - Abdominal pain [Unknown]
  - Nausea [Unknown]
  - Vomiting [Unknown]
